FAERS Safety Report 6903698-9 (Version None)
Quarter: 2010Q3

REPORT INFORMATION
  Report Type: 
  Country: None (occurrence: None)
  Receive Date: 20100803
  Receipt Date: 20081113
  Transmission Date: 20110219
  Serious: No
  Sender: FDA-Public Use
  Company Number: US-PFIZER INC-2008096551

PATIENT
  Sex: Female
  Weight: 54.545 kg

DRUGS (2)
  1. LYRICA [Suspect]
     Indication: FIBROMYALGIA
     Dates: start: 20080901, end: 20080101
  2. KLONOPIN [Concomitant]

REACTIONS (1)
  - ACTIVITIES OF DAILY LIVING IMPAIRED [None]
